FAERS Safety Report 6158677-9 (Version None)
Quarter: 2009Q2

REPORT INFORMATION
  Report Type: 
  Country: None (occurrence: None)
  Receive Date: 20090417
  Receipt Date: 20090409
  Transmission Date: 20091009
  Serious: Yes (Hospitalization, Congenital Anomaly)
  Sender: FDA-Public Use
  Company Number: A0679412A

PATIENT
  Sex: Male

DRUGS (3)
  1. PAXIL [Suspect]
     Indication: DRUG USE FOR UNKNOWN INDICATION
     Dosage: 20MG PER DAY
     Route: 048
     Dates: start: 20000814, end: 20050101
  2. NORVASC [Concomitant]
     Dates: start: 20040101, end: 20070101
  3. VITAMIN TAB [Concomitant]

REACTIONS (27)
  - ANAEMIA [None]
  - AUTISM [None]
  - CAESAREAN SECTION [None]
  - CARDIAC DISORDER [None]
  - CARDIAC MURMUR [None]
  - CYANOSIS NEONATAL [None]
  - DRUG EXPOSURE DURING PREGNANCY [None]
  - DYSPNOEA [None]
  - EAR INFECTION [None]
  - FATIGUE [None]
  - FEEDING DISORDER NEONATAL [None]
  - FOOT DEFORMITY [None]
  - HEAD BANGING [None]
  - HEAD CIRCUMFERENCE ABNORMAL [None]
  - HEART DISEASE CONGENITAL [None]
  - HYPOGLYCAEMIA NEONATAL [None]
  - INTENTIONAL SELF-INJURY [None]
  - LARYNGEAL WEB [None]
  - MATERNAL DRUGS AFFECTING FOETUS [None]
  - MENTAL IMPAIRMENT [None]
  - OVERWEIGHT [None]
  - POOR SUCKING REFLEX [None]
  - RENAL HYPERTROPHY [None]
  - SENSORY DISTURBANCE [None]
  - SPEECH DISORDER DEVELOPMENTAL [None]
  - TRACHEAL DISORDER [None]
  - VENTRICULAR SEPTAL DEFECT [None]
